FAERS Safety Report 9187989 (Version 1)
Quarter: 2013Q1

REPORT INFORMATION
  Report Type: Spontaneous
  Country: US (occurrence: US)
  Receive Date: 20130325
  Receipt Date: 20130325
  Transmission Date: 20140127
  Serious: No
  Sender: FDA-Public Use
  Company Number: US-MYLANLABS-2012S1023395

PATIENT
  Age: 57 Year
  Sex: Male
  Weight: 124.74 kg

DRUGS (4)
  1. FENTANYL TRANSDERMAL SYSTEM [Suspect]
     Indication: PAIN
     Dosage: Q 48H
     Route: 062
     Dates: start: 2006
  2. VIAGRA [Concomitant]
  3. NORCO [Concomitant]
  4. AZITHROMYCIN [Concomitant]
     Route: 048
     Dates: start: 20121106

REACTIONS (4)
  - Drug effect increased [Not Recovered/Not Resolved]
  - Dysarthria [Not Recovered/Not Resolved]
  - Fatigue [Not Recovered/Not Resolved]
  - Confusional state [Not Recovered/Not Resolved]
